FAERS Safety Report 19361992 (Version 1)
Quarter: 2021Q2

REPORT INFORMATION
  Report Type: Spontaneous
  Country: CN (occurrence: CN)
  Receive Date: 20210601
  Receipt Date: 20210601
  Transmission Date: 20210717
  Serious: Yes (Other)
  Sender: FDA-Public Use
  Company Number: CN-PFIZER INC-2021571164

PATIENT
  Age: 7 Year
  Sex: Male
  Weight: 23.5 kg

DRUGS (2)
  1. ZITHROMAX [Suspect]
     Active Substance: AZITHROMYCIN DIHYDRATE
     Indication: BRONCHITIS
     Dosage: 0.5 G, 1X/DAY
     Route: 041
     Dates: start: 20210415, end: 20210417
  2. GLUCOSE [Concomitant]
     Active Substance: DEXTROSE
     Dosage: 235 ML, 1X/DAY
     Route: 041
     Dates: start: 20210415, end: 20210417

REACTIONS (4)
  - Off label use [Unknown]
  - Product use issue [Unknown]
  - Hyperpyrexia [Recovering/Resolving]
  - Chills [Recovering/Resolving]

NARRATIVE: CASE EVENT DATE: 20210415
